FAERS Safety Report 6739221-1 (Version None)
Quarter: 2010Q2

REPORT INFORMATION
  Report Type: 
  Country: None (occurrence: None)
  Receive Date: 20100520
  Receipt Date: 20100507
  Transmission Date: 20101027
  Serious: Yes (Other)
  Sender: FDA-Public Use
  Company Number: 2010AP000967

PATIENT
  Age: 39 Year
  Sex: Female

DRUGS (7)
  1. FLUOXETINE HYDROCHLORIDE [Suspect]
     Dosage: 20 MG;QD
  2. TOPIRAMATE [Suspect]
     Indication: CONVULSION
     Dosage: 50 MG;BID
  3. AMANTADINE HCL [Suspect]
     Indication: FATIGUE
     Dosage: 2100 MG;BID ; 100 MG;QD
  4. AMANTADINE HCL [Suspect]
     Indication: TREMOR
     Dosage: 2100 MG;BID ; 100 MG;QD
  5. BUPROPION HCL [Concomitant]
  6. GLATIRAMER ACETATE [Concomitant]
  7. CLONAZEPAM [Concomitant]

REACTIONS (4)
  - CORNEAL OEDEMA [None]
  - FATIGUE [None]
  - MALNUTRITION [None]
  - TREMOR [None]
